FAERS Safety Report 7227987-6 (Version None)
Quarter: 2011Q1

REPORT INFORMATION
  Report Type: 
  Country: None (occurrence: None)
  Receive Date: 20110114
  Receipt Date: 20110110
  Transmission Date: 20110831
  Serious: Yes (Other)
  Sender: FDA-Public Use
  Company Number: BR-ABBOTT-09P-020-0497110-00

PATIENT
  Sex: Female

DRUGS (3)
  1. HUMIRA [Suspect]
     Indication: RHEUMATOID ARTHRITIS
     Route: 058
     Dates: start: 20050701
  2. METHOTREXATE [Concomitant]
     Indication: PRODUCT USED FOR UNKNOWN INDICATION
     Route: 048
  3. METHOTREXATE [Concomitant]
     Route: 058

REACTIONS (1)
  - CHRONIC MYELOID LEUKAEMIA [None]
